FAERS Safety Report 18627742 (Version 2)
Quarter: 2021Q1

REPORT INFORMATION
  Report Type: Spontaneous
  Country: US (occurrence: US)
  Receive Date: 20201217
  Receipt Date: 20210108
  Transmission Date: 20210419
  Serious: Yes (Other)
  Sender: FDA-Public Use
  Company Number: US-SUNOVION-2020SUN003733

PATIENT
  Sex: Female
  Weight: 65.76 kg

DRUGS (3)
  1. LATUDA [Suspect]
     Active Substance: LURASIDONE HYDROCHLORIDE
     Indication: GENERALISED ANXIETY DISORDER
  2. LATUDA [Suspect]
     Active Substance: LURASIDONE HYDROCHLORIDE
     Indication: BORDERLINE PERSONALITY DISORDER
     Dosage: 20 MG
     Route: 048
     Dates: start: 20201204, end: 20201204
  3. LATUDA [Suspect]
     Active Substance: LURASIDONE HYDROCHLORIDE
     Indication: BIPOLAR DISORDER
     Dosage: 40 MG
     Route: 048
     Dates: start: 20201205, end: 20201209

REACTIONS (8)
  - Feeling abnormal [Unknown]
  - Anxiety [Not Recovered/Not Resolved]
  - Maternal exposure during pregnancy [Unknown]
  - Suicidal ideation [Unknown]
  - Off label use [Unknown]
  - Autophobia [Not Recovered/Not Resolved]
  - Abortion spontaneous [Unknown]
  - Mania [Not Recovered/Not Resolved]
